FAERS Safety Report 9789093 (Version 1)
Quarter: 2013Q4

REPORT INFORMATION
  Report Type: Spontaneous
  Country: US (occurrence: US)
  Receive Date: 20131230
  Receipt Date: 20131230
  Transmission Date: 20140711
  Serious: No
  Sender: FDA-Public Use
  Company Number: US-TEVA-451629USA

PATIENT
  Age: 25 Year
  Sex: Female
  Weight: 104.87 kg

DRUGS (3)
  1. PARAGARD 380A [Suspect]
     Indication: CONTRACEPTION
     Route: 015
     Dates: start: 20131126, end: 201312
  2. LISINOPRIL [Concomitant]
     Dosage: 10 MILLIGRAM DAILY;
  3. LENOXIN [Concomitant]

REACTIONS (1)
  - Device expulsion [Recovered/Resolved]
